FAERS Safety Report 12160039 (Version 1)
Quarter: 2016Q1

REPORT INFORMATION
  Report Type: Report from Study
  Country: US (occurrence: US)
  Receive Date: 20160308
  Receipt Date: 20160308
  Transmission Date: 20160526
  Serious: Yes (Other)
  Sender: FDA-Public Use
  Company Number: US-BIOGEN-2016BI00197827

PATIENT
  Sex: Female

DRUGS (1)
  1. TECFIDERA [Suspect]
     Active Substance: DIMETHYL FUMARATE
     Indication: MULTIPLE SCLEROSIS
     Route: 048
     Dates: start: 201512

REACTIONS (5)
  - Seizure like phenomena [Unknown]
  - Restless legs syndrome [Unknown]
  - Drug dose omission [Unknown]
  - Neuralgia [Unknown]
  - Vision blurred [Unknown]
